FAERS Safety Report 5801736-8 (Version None)
Quarter: 2008Q3

REPORT INFORMATION
  Report Type: 
  Country: None (occurrence: None)
  Receive Date: 20080707
  Receipt Date: 20080702
  Transmission Date: 20090109
  Serious: Yes (Other)
  Sender: FDA-Public Use
  Company Number: B0528047A

PATIENT
  Age: 79 Year
  Sex: Female

DRUGS (7)
  1. AUGMENTIN '125' [Suspect]
     Indication: BRONCHOPNEUMONIA
     Dosage: 3G PER DAY
     Route: 048
     Dates: start: 20080529, end: 20080604
  2. ACETYLSALICYLIC ACID SRT [Concomitant]
     Dosage: 100MG PER DAY
     Route: 048
  3. OMEPRAZOLE SODIUM [Concomitant]
     Dosage: 20MG PER DAY
     Route: 048
  4. FUROSEMIDE [Concomitant]
     Dosage: 50MG PER DAY
     Route: 048
  5. ISOSORBIDE MONONITRATE [Concomitant]
     Dosage: 60MG PER DAY
     Route: 048
  6. METOPROLOL SUCCINATE [Concomitant]
     Dosage: 25MG PER DAY
     Route: 048
  7. INSULIN [Concomitant]

REACTIONS (2)
  - GAMMA-GLUTAMYLTRANSFERASE INCREASED [None]
  - TRANSAMINASES INCREASED [None]
